FAERS Safety Report 6192761-9 (Version None)
Quarter: 2009Q2

REPORT INFORMATION
  Report Type: 
  Country: None (occurrence: None)
  Receive Date: 20090518
  Receipt Date: 20081120
  Transmission Date: 20091009
  Serious: No
  Sender: FDA-Public Use
  Company Number: US-TYCO HEALTHCARE/MALLINCKRODT-T200801997

PATIENT

DRUGS (4)
  1. ACETAMINOPHEN AND HYDROCODONE BITARTRATE [Suspect]
     Indication: PROCEDURAL PAIN
     Dosage: 2 TABS EVERY 4 HRS.
     Route: 048
     Dates: start: 20081114, end: 20081116
  2. CATAPRES                           /00171101/ [Concomitant]
     Indication: HYPERTENSION
     Dosage: UNK
     Route: 048
  3. XANAX [Concomitant]
     Dosage: UNK
     Route: 048
  4. SKELAXIN [Concomitant]
     Dosage: UNK
     Route: 048

REACTIONS (2)
  - DRUG INEFFECTIVE [None]
  - HEADACHE [None]
